FAERS Safety Report 5018057-6 (Version None)
Quarter: 2006Q2

REPORT INFORMATION
  Report Type: 
  Country: None (occurrence: None)
  Receive Date: 20060605
  Receipt Date: 20060425
  Transmission Date: 20061013
  Serious: Yes (Life-Threatening)
  Sender: FDA-Public Use
  Company Number: JP-AVENTIS-200611375JP

PATIENT
  Age: 35 Year
  Sex: Female
  Weight: 37 kg

DRUGS (5)
  1. KETEK [Suspect]
     Indication: PNEUMONIA
     Route: 048
     Dates: start: 20060422, end: 20060425
  2. MUCODYNE [Concomitant]
     Indication: PNEUMONIA
     Route: 048
     Dates: start: 20060415, end: 20060425
  3. GASTER [Concomitant]
     Indication: GASTRITIS
     Route: 048
     Dates: start: 20060415, end: 20060425
  4. RESPLEN [Concomitant]
     Indication: APTYALISM
     Route: 048
     Dates: start: 20060415, end: 20060425
  5. ALLEGRA [Concomitant]
     Indication: URTICARIA
     Route: 048
     Dates: start: 20060415, end: 20060425

REACTIONS (3)
  - ANURIA [None]
  - ENTEROCOLITIS [None]
  - SHOCK [None]
